FAERS Safety Report 12142858 (Version 1)
Quarter: 2016Q1

REPORT INFORMATION
  Report Type: Spontaneous
  Country: FR (occurrence: FR)
  Receive Date: 20160303
  Receipt Date: 20160303
  Transmission Date: 20160526
  Serious: Yes (Other)
  Sender: FDA-Public Use
  Company Number: FR-GILEAD-2016-0201032

PATIENT
  Age: 55 Year
  Sex: Male

DRUGS (1)
  1. HARVONI [Suspect]
     Active Substance: LEDIPASVIR\SOFOSBUVIR
     Indication: PRODUCT USED FOR UNKNOWN INDICATION
     Route: 065

REACTIONS (9)
  - Insomnia [Unknown]
  - Depression [Unknown]
  - Nightmare [Unknown]
  - Cognitive disorder [Unknown]
  - Eating disorder [Unknown]
  - Asthenia [Unknown]
  - Psychiatric decompensation [Unknown]
  - Tachycardia [Unknown]
  - Psychomotor hyperactivity [Unknown]
